FAERS Safety Report 7840961-1 (Version None)
Quarter: 2011Q4

REPORT INFORMATION
  Report Type: 
  Country: None (occurrence: None)
  Receive Date: 20111021
  Receipt Date: 20111021
  Transmission Date: 20120403
  Serious: Yes (Other)
  Sender: FDA-Public Use
  Company Number: None

PATIENT
  Age: 52 Year
  Sex: Female
  Weight: 63.5036 kg

DRUGS (3)
  1. GABAPENTIN [Suspect]
     Indication: PAIN
     Dosage: 100 MG  TO 1600 MG INCREASING 4X DAY
     Dates: start: 20101201
  2. GABAPENTIN [Suspect]
     Indication: PAIN
     Dosage: 100 MG  TO 1600 MG INCREASING 4X DAY
     Dates: start: 20101001
  3. GABAPENTIN [Suspect]
     Indication: PAIN
     Dosage: 100 MG  TO 1600 MG INCREASING 4X DAY
     Dates: start: 20101101

REACTIONS (5)
  - SPEECH DISORDER [None]
  - AMNESIA [None]
  - LOSS OF CONSCIOUSNESS [None]
  - HAIR GROWTH ABNORMAL [None]
  - MOOD ALTERED [None]
